FAERS Safety Report 8013454-9 (Version None)
Quarter: 2011Q4

REPORT INFORMATION
  Report Type: 
  Country: None (occurrence: None)
  Receive Date: 20111229
  Receipt Date: 20111223
  Transmission Date: 20120403
  Serious: Yes (Hospitalization, Disabling, Other)
  Sender: FDA-Public Use
  Company Number: DE-PFIZER INC-2011312432

PATIENT
  Age: 75 Year
  Sex: Female

DRUGS (6)
  1. DURAGESIC-100 [Concomitant]
     Route: 062
  2. MARCUMAR [Concomitant]
  3. METOPROLOL [Concomitant]
     Dosage: 95 MG, UNK
     Route: 048
  4. GABAPENTIN [Suspect]
     Indication: NEUROPATHY PERIPHERAL
     Dosage: 600 MG, 3X/DAY
     Route: 048
     Dates: start: 20110801, end: 20110804
  5. AMITRIPTYLINE [Concomitant]
     Dosage: 25 MG, UNK
     Route: 048
  6. OMEPRAZOLE [Concomitant]
     Dosage: 20 UNK, UNK
     Route: 048

REACTIONS (1)
  - RHABDOMYOLYSIS [None]
